FAERS Safety Report 24960461 (Version 1)
Quarter: 2025Q1

REPORT INFORMATION
  Report Type: Report from Study
  Country: US (occurrence: US)
  Receive Date: 20250212
  Receipt Date: 20250212
  Transmission Date: 20250408
  Serious: Yes (Death, Hospitalization)
  Sender: BAYER HEALTHCARE PHARMACEUTICALS INC.
  Company Number: US-BAYER-2025A019186

PATIENT
  Sex: Female
  Weight: 85.261 kg

DRUGS (16)
  1. ADEMPAS [Suspect]
     Active Substance: RIOCIGUAT
     Indication: Pulmonary hypertension
     Dates: start: 202408
  2. ADEMPAS [Suspect]
     Active Substance: RIOCIGUAT
     Indication: Pulmonary hypertension
     Dosage: 2 MG, TID
     Route: 048
     Dates: start: 20240913
  3. ATORVASTATIN CALCIUM [Concomitant]
     Active Substance: ATORVASTATIN CALCIUM
  4. ZITHROMAX [Concomitant]
     Active Substance: AZITHROMYCIN DIHYDRATE
  5. JARDIANCE [Concomitant]
     Active Substance: EMPAGLIFLOZIN
  6. FLUTICASONE FUROATE\SALMETEROL XINAFOATE [Concomitant]
     Active Substance: FLUTICASONE FUROATE\SALMETEROL XINAFOATE
  7. ELIQUIS [Concomitant]
     Active Substance: APIXABAN
  8. MAGNESIUM [Concomitant]
     Active Substance: MAGNESIUM
  9. METOPROLOL SUCCINATE [Concomitant]
     Active Substance: METOPROLOL SUCCINATE
  10. POTASSIUM CHLORIDE [Concomitant]
     Active Substance: POTASSIUM CHLORIDE
  11. MUCINEX [Concomitant]
     Active Substance: GUAIFENESIN
  12. OXYGEN [Concomitant]
     Active Substance: OXYGEN
  13. BUMETANIDE [Concomitant]
     Active Substance: BUMETANIDE
  14. METFORMIN HYDROCHLORIDE [Concomitant]
     Active Substance: METFORMIN HYDROCHLORIDE
  15. OMEPRAZOLE [Concomitant]
     Active Substance: OMEPRAZOLE
  16. LOPERAMIDE HYDROCHLORIDE [Concomitant]
     Active Substance: LOPERAMIDE HYDROCHLORIDE

REACTIONS (1)
  - Death [Fatal]
